FAERS Safety Report 6536998-5 (Version None)
Quarter: 2010Q1

REPORT INFORMATION
  Report Type: 
  Country: None (occurrence: None)
  Receive Date: 20100107
  Receipt Date: 20091221
  Transmission Date: 20100710
  Serious: Yes (Hospitalization)
  Sender: FDA-Public Use
  Company Number: 100105-0000004

PATIENT
  Age: 16 Month
  Sex: Female

DRUGS (7)
  1. VIGABATRIN (VIGABATRIN) [Suspect]
     Indication: CONVULSION
  2. CLONAZEPAM [Suspect]
     Indication: CONVULSION
  3. LEVETIRACETAM [Suspect]
     Indication: DRUG USE FOR UNKNOWN INDICATION
  4. CLOBAZAM [Concomitant]
  5. PREDNISOLONE [Concomitant]
  6. OXYGEN [Concomitant]
  7. CEFUROXIME [Concomitant]

REACTIONS (5)
  - BLISTER [None]
  - COMA [None]
  - NEURODEVELOPMENTAL DISORDER [None]
  - SOMNOLENCE [None]
  - SWELLING FACE [None]
